FAERS Safety Report 7425802-9 (Version None)
Quarter: 2011Q2

REPORT INFORMATION
  Report Type: 
  Country: None (occurrence: None)
  Receive Date: 20110420
  Receipt Date: 20110415
  Transmission Date: 20111010
  Serious: Yes (Hospitalization)
  Sender: FDA-Public Use
  Company Number: CA-PFIZER INC-2011084076

PATIENT

DRUGS (1)
  1. DILANTIN [Suspect]
     Dosage: 100 MG

REACTIONS (1)
  - TOXICITY TO VARIOUS AGENTS [None]
